FAERS Safety Report 8735316 (Version 2)
Quarter: 2013Q4

REPORT INFORMATION
  Report Type: Spontaneous
  Country: US (occurrence: US)
  Receive Date: 20120822
  Receipt Date: 20131101
  Transmission Date: 20140711
  Serious: No
  Sender: FDA-Public Use
  Company Number: US-009507513-1207USA010534

PATIENT
  Sex: Female

DRUGS (2)
  1. MIRALAX [Suspect]
     Indication: COLONOSCOPY
     Dosage: 119 G, ONCE
     Route: 048
  2. MIRALAX [Suspect]
     Indication: MEDICAL OBSERVATION

REACTIONS (4)
  - Abnormal faeces [Unknown]
  - Diarrhoea [Unknown]
  - Overdose [Unknown]
  - Off label use [Unknown]
